FAERS Safety Report 6244641-8 (Version None)
Quarter: 2009Q2

REPORT INFORMATION
  Report Type: 
  Country: None (occurrence: None)
  Receive Date: 20090619
  Receipt Date: 20090506
  Transmission Date: 20091009
  Serious: No
  Sender: FDA-Public Use
  Company Number: ALL1-2009-01287

PATIENT
  Sex: Female

DRUGS (1)
  1. VYVANSE [Suspect]
     Indication: DRUG USE FOR UNKNOWN INDICATION
     Dosage: 60 MG, 1X/DAY:QD TAKEN AS TWO 30 MG, ORAL
     Route: 048

REACTIONS (2)
  - ABDOMINAL DISCOMFORT [None]
  - MALABSORPTION [None]
